FAERS Safety Report 4509793-6 (Version None)
Quarter: 2004Q4

REPORT INFORMATION
  Report Type: 
  Country: None (occurrence: None)
  Receive Date: 20041124
  Receipt Date: 20040614
  Transmission Date: 20050328
  Serious: No
  Sender: FDA-Public Use
  Company Number: US-BRISTOL-MYERS SQUIBB COMPANY-12622973

PATIENT
  Age: 51 Year
  Sex: Male

DRUGS (3)
  1. AVALIDE [Suspect]
     Indication: HYPERTENSION
     Dosage: DOSAGE: 150MG/12.5MG
     Route: 048
  2. KLOR-CON [Suspect]
     Indication: MINERAL SUPPLEMENTATION
     Route: 048
     Dates: start: 20040610, end: 20040613
  3. LASIX [Suspect]
     Indication: HYPERTENSION
     Route: 048
     Dates: start: 20040610, end: 20040614

REACTIONS (3)
  - DIZZINESS [None]
  - NAUSEA [None]
  - WEIGHT DECREASED [None]
